FAERS Safety Report 21156266 (Version 3)
Quarter: 2022Q3

REPORT INFORMATION
  Report Type: Spontaneous
  Country: US (occurrence: None)
  Receive Date: 20220801
  Receipt Date: 20220824
  Transmission Date: 20221027
  Serious: Yes (Other)
  Sender: FDA-Public Use
  Company Number: 2022A262784

PATIENT
  Sex: Female
  Weight: 58.1 kg

DRUGS (2)
  1. TAGRISSO [Suspect]
     Active Substance: OSIMERTINIB
     Indication: EGFR gene mutation
     Route: 048
     Dates: start: 20220305, end: 20220727
  2. SODIUM CHLORIDE [Concomitant]
     Active Substance: SODIUM CHLORIDE
     Dosage: 500ML IV FOR 2 DAYS
     Route: 065
     Dates: start: 20220623, end: 20220724

REACTIONS (1)
  - Chronic kidney disease [Not Recovered/Not Resolved]
